FAERS Safety Report 8395271-3 (Version None)
Quarter: 2012Q2

REPORT INFORMATION
  Report Type: 
  Country: None (occurrence: None)
  Receive Date: 20120530
  Receipt Date: 20120523
  Transmission Date: 20120825
  Serious: Yes (Hospitalization, Other)
  Sender: FDA-Public Use
  Company Number: PHHY2011JP95685

PATIENT
  Sex: Male

DRUGS (7)
  1. LANSOPRAZOLE [Concomitant]
     Dosage: 15 MG, UNK
     Route: 048
  2. BETAMETHASONE [Concomitant]
     Indication: METASTATIC RENAL CELL CARCINOMA
     Dosage: 2 MG, UNK
     Route: 048
  3. AFINITOR [Suspect]
     Indication: METASTATIC RENAL CELL CARCINOMA
     Dosage: 10 MG, DAILY
     Route: 048
     Dates: start: 20110705, end: 20110728
  4. ALLOPURINOL [Concomitant]
     Dosage: 100 MG, UNK
     Route: 048
  5. ADALAT CC [Concomitant]
     Dosage: 20 MG, UNK
     Route: 048
  6. SUMIFERON [Concomitant]
     Dates: start: 20110909, end: 20110923
  7. CRESTOR [Concomitant]
     Dosage: 2.5 MG, UNK
     Route: 048

REACTIONS (12)
  - LYMPHOCYTE COUNT DECREASED [None]
  - BLOOD CREATININE INCREASED [None]
  - PNEUMONIA CRYPTOCOCCAL [None]
  - URINE OUTPUT DECREASED [None]
  - INTERSTITIAL LUNG DISEASE [None]
  - PNEUMOCYSTIS JIROVECI PNEUMONIA [None]
  - ANURIA [None]
  - ACUTE RESPIRATORY DISTRESS SYNDROME [None]
  - ANAEMIA [None]
  - PYREXIA [None]
  - PNEUMONIA FUNGAL [None]
  - PLATELET COUNT DECREASED [None]
